FAERS Safety Report 5528759-0 (Version None)
Quarter: 2007Q4

REPORT INFORMATION
  Report Type: 
  Country: None (occurrence: None)
  Receive Date: 20071119
  Receipt Date: 20070125
  Transmission Date: 20080405
  Serious: Yes (Hospitalization)
  Sender: FDA-Public Use
  Company Number: US-JNJFOC-20070107346

PATIENT
  Age: 38 Year
  Sex: Female

DRUGS (2)
  1. ELMIRON [Suspect]
     Indication: BLADDER PAIN
     Dosage: 100 MG, 3 IN 1 DAY, ORAL
     Route: 048
     Dates: start: 20050601
  2. ZOMIG [Concomitant]

REACTIONS (2)
  - HEADACHE [None]
  - NAUSEA [None]
